FAERS Safety Report 5721619-1 (Version None)
Quarter: 2008Q2

REPORT INFORMATION
  Report Type: 
  Country: None (occurrence: None)
  Receive Date: 20080429
  Receipt Date: 20071008
  Transmission Date: 20081010
  Serious: No
  Sender: FDA-Public Use
  Company Number: US-ASTRAZENECA-2007UW01395

PATIENT
  Age: 69 Year
  Sex: Female
  Weight: 70.3 kg

DRUGS (7)
  1. NEXIUM [Suspect]
     Indication: GASTROOESOPHAGEAL REFLUX DISEASE
     Route: 048
     Dates: start: 20061201
  2. NEXIUM [Suspect]
     Indication: COUGH
     Route: 048
     Dates: start: 20061201
  3. NEXIUM [Suspect]
     Route: 048
     Dates: start: 20061201
  4. ACTONEL [Concomitant]
  5. PREDNISONE [Concomitant]
     Route: 048
  6. METHOTREXATE [Concomitant]
  7. VITAMINS [Concomitant]

REACTIONS (3)
  - CHOKING [None]
  - DRUG INEFFECTIVE [None]
  - MOUTH ULCERATION [None]
